FAERS Safety Report 4388759-3 (Version None)
Quarter: 2004Q3

REPORT INFORMATION
  Report Type: 
  Country: None (occurrence: None)
  Receive Date: 20040701
  Receipt Date: 20040621
  Transmission Date: 20050211
  Serious: Yes (Other)
  Sender: FDA-Public Use
  Company Number: FR-GLAXOSMITHKLINE-B0336941A

PATIENT
  Age: 10 Year

DRUGS (6)
  1. VALACYCLOVIR HCL [Suspect]
     Indication: CYTOMEGALOVIRUS INFECTION
     Dosage: 4G PER DAY
     Route: 048
     Dates: start: 20040301
  2. VALACYCLOVIR HCL [Suspect]
     Indication: PROPHYLAXIS
     Dosage: 4G PER DAY
     Route: 048
     Dates: start: 20040301
  3. PROGRAF [Suspect]
     Indication: PROPHYLAXIS AGAINST TRANSPLANT REJECTION
     Route: 065
     Dates: start: 20040301, end: 20040621
  4. ZESTRIL [Suspect]
     Route: 048
     Dates: start: 20040601
  5. BACTRIM [Concomitant]
  6. CORTICOIDS [Concomitant]
     Route: 065

REACTIONS (3)
  - AGRANULOCYTOSIS [None]
  - NEUTROPENIA [None]
  - PYREXIA [None]
